FAERS Safety Report 12298075 (Version 2)
Quarter: 2016Q2

REPORT INFORMATION
  Report Type: Spontaneous
  Country: US (occurrence: US)
  Receive Date: 20160422
  Receipt Date: 20160428
  Transmission Date: 20160815
  Serious: Yes (Other)
  Sender: FDA-Public Use
  Company Number: US-ASTRAZENECA-2016SE42988

PATIENT
  Age: 66 Year
  Sex: Female
  Weight: 86.2 kg

DRUGS (4)
  1. NEXIUM 24HR [Suspect]
     Active Substance: ESOMEPRAZOLE MAGNESIUM
     Indication: BARRETT^S OESOPHAGUS
     Dosage: SHE HAD TAKEN FOUR, 3 WEEK REGIMENS OF THE ESOMEPRAZOLE MAGNESIUM ONE A DAY.
     Route: 048
  2. NEXIUM 24HR [Suspect]
     Active Substance: ESOMEPRAZOLE MAGNESIUM
     Indication: BARRETT^S OESOPHAGUS
     Route: 048
     Dates: start: 201505, end: 20160412
  3. NEXIUM 24HR [Suspect]
     Active Substance: ESOMEPRAZOLE MAGNESIUM
     Indication: GASTROOESOPHAGEAL REFLUX DISEASE
     Route: 048
     Dates: start: 201505, end: 20160412
  4. NEXIUM 24HR [Suspect]
     Active Substance: ESOMEPRAZOLE MAGNESIUM
     Indication: GASTROOESOPHAGEAL REFLUX DISEASE
     Dosage: SHE HAD TAKEN FOUR, 3 WEEK REGIMENS OF THE ESOMEPRAZOLE MAGNESIUM ONE A DAY.
     Route: 048

REACTIONS (11)
  - Chest pain [Recovering/Resolving]
  - Neck pain [Recovering/Resolving]
  - Product use issue [Unknown]
  - Musculoskeletal pain [Recovering/Resolving]
  - Dizziness [Recovered/Resolved]
  - Off label use [Unknown]
  - Product use issue [Unknown]
  - Dyspnoea [Recovering/Resolving]
  - Oropharyngeal pain [Recovering/Resolving]
  - Eructation [Unknown]
  - Flatulence [Unknown]

NARRATIVE: CASE EVENT DATE: 2015
